FAERS Safety Report 9984923 (Version 1)
Quarter: 2014Q1

REPORT INFORMATION
  Report Type: Report from Study
  Country: US (occurrence: US)
  Receive Date: 20140307
  Receipt Date: 20140307
  Transmission Date: 20141002
  Serious: No
  Sender: FDA-Public Use
  Company Number: US-ABBVIE-13P-163-1184507-00

PATIENT
  Age: 46 Year
  Sex: Female

DRUGS (5)
  1. HUMIRA [Suspect]
     Indication: COLITIS ULCERATIVE
     Dosage: ONE TIME DOSE
     Route: 058
     Dates: start: 20131227, end: 20131227
  2. HUMIRA [Suspect]
     Route: 058
  3. ASACOL [Concomitant]
     Indication: COLITIS ULCERATIVE
  4. CANASA [Concomitant]
     Indication: COLITIS ULCERATIVE
     Route: 054
  5. PREDNISONE [Concomitant]
     Indication: COLITIS ULCERATIVE

REACTIONS (1)
  - Injection site pain [Recovered/Resolved]
